FAERS Safety Report 4302961-8 (Version None)
Quarter: 2004Q1

REPORT INFORMATION
  Report Type: 
  Country: None (occurrence: None)
  Receive Date: 20040220
  Receipt Date: 20040207
  Transmission Date: 20041129
  Serious: Yes (Hospitalization, Disabling, Other)
  Sender: FDA-Public Use
  Company Number: 2003008068

PATIENT
  Sex: Female
  Weight: 68.0396 kg

DRUGS (5)
  1. NEURONTIN [Suspect]
     Indication: CONVULSION
     Dates: start: 19950101, end: 20010101
  2. DILANTIN [Suspect]
     Indication: CONVULSION
     Dosage: 1200 MG (TID), ORAL
     Route: 048
     Dates: start: 19930101, end: 19950101
  3. ACETYLSALICYLIC ACID SRT [Suspect]
     Indication: ILL-DEFINED DISORDER
  4. VITAMINS WITH MINERALS [Suspect]
     Indication: ANAEMIA
  5. MEGESTROL (MEGESTROL) [Concomitant]

REACTIONS (14)
  - ACTIVITIES OF DAILY LIVING IMPAIRED [None]
  - APLASTIC ANAEMIA [None]
  - ARTHRALGIA [None]
  - BALANCE DISORDER [None]
  - DIFFICULTY IN WALKING [None]
  - DRY MOUTH [None]
  - FALL [None]
  - HYPOTONIA [None]
  - MUSCLE CRAMP [None]
  - MUSCLE SPASMS [None]
  - PAIN [None]
  - PAIN IN EXTREMITY [None]
  - PARALYSIS [None]
  - RED BLOOD CELL COUNT INCREASED [None]
